FAERS Safety Report 22656453 (Version 1)
Quarter: 2023Q2

REPORT INFORMATION
  Report Type: Spontaneous
  Country: US (occurrence: US)
  Receive Date: 20230629
  Receipt Date: 20230629
  Transmission Date: 20230721
  Serious: No
  Sender: FDA-Public Use
  Company Number: US-drreddys-SPO/USA/23/0164739

PATIENT
  Age: 28 Year
  Sex: Female
  Weight: 74.8 kg

DRUGS (2)
  1. ZENATANE [Suspect]
     Active Substance: ISOTRETINOIN
     Indication: Acne
     Route: 048
     Dates: start: 20220411, end: 20220718
  2. ZENATANE [Suspect]
     Active Substance: ISOTRETINOIN
     Route: 048
     Dates: start: 20230106, end: 20230214

REACTIONS (3)
  - Lip dry [Recovered/Resolved]
  - Dry eye [Recovered/Resolved]
  - Dry skin [Recovered/Resolved]
